FAERS Safety Report 5115278-9 (Version None)
Quarter: 2006Q3

REPORT INFORMATION
  Report Type: 
  Country: None (occurrence: None)
  Receive Date: 20060926
  Receipt Date: 20060918
  Transmission Date: 20061208
  Serious: Yes (Other)
  Sender: FDA-Public Use
  Company Number: FR-GLAXOSMITHKLINE-B0438459A

PATIENT
  Age: 61 Year
  Sex: Male
  Weight: 106 kg

DRUGS (5)
  1. AVANDIA [Suspect]
     Indication: DIABETES MELLITUS NON-INSULIN-DEPENDENT
     Dosage: 8MG PER DAY
     Route: 048
     Dates: start: 20060306, end: 20060605
  2. GLUCOVANCE [Concomitant]
     Route: 065
     Dates: start: 20050501
  3. DIASTABOL [Concomitant]
     Route: 065
     Dates: start: 20060306
  4. COTAREG [Concomitant]
     Route: 065
  5. LIPANTHYL [Concomitant]
     Route: 065

REACTIONS (1)
  - HYPERTRIGLYCERIDAEMIA [None]
